FAERS Safety Report 9445171 (Version 1)
Quarter: 2013Q3

REPORT INFORMATION
  Report Type: Spontaneous
  Country: US (occurrence: US)
  Receive Date: 20130807
  Receipt Date: 20130807
  Transmission Date: 20140515
  Serious: Yes (Death)
  Sender: FDA-Public Use
  Company Number: US-GLAXOSMITHKLINE-A1035709A

PATIENT
  Age: 64 Year
  Sex: Male

DRUGS (6)
  1. ADVAIR [Suspect]
     Indication: ASTHMA
     Route: 055
     Dates: start: 201305
  2. VENTOLIN [Suspect]
     Indication: ASTHMA
     Route: 055
     Dates: start: 1993
  3. THEOPHYLLINE [Concomitant]
  4. LEUSTATIN [Concomitant]
  5. FISH OIL [Concomitant]
  6. VITAMIN C [Concomitant]

REACTIONS (2)
  - Lung neoplasm malignant [Fatal]
  - Cough [Unknown]
